FAERS Safety Report 6243673-3 (Version None)
Quarter: 2009Q2

REPORT INFORMATION
  Report Type: 
  Country: None (occurrence: None)
  Receive Date: 20090624
  Receipt Date: 20090622
  Transmission Date: 20091009
  Serious: Yes (Hospitalization, Other)
  Sender: FDA-Public Use
  Company Number: HQWYE458923JAN06

PATIENT
  Sex: Female

DRUGS (40)
  1. SIROLIMUS [Suspect]
     Indication: PROPHYLAXIS AGAINST TRANSPLANT REJECTION
     Route: 048
     Dates: start: 20030317, end: 20030319
  2. SIROLIMUS [Suspect]
     Dosage: INTIATED AT 3 MG/DAY; DOSE THEN VARIED ACCORDING TO TROUGH LEVELS (9-3 MG)
     Route: 048
     Dates: start: 20030320, end: 20030703
  3. MYCOPHENOLATE MOFETIL [Suspect]
     Indication: PROPHYLAXIS AGAINST TRANSPLANT REJECTION
     Route: 048
     Dates: start: 20030317, end: 20030317
  4. MYCOPHENOLATE MOFETIL [Suspect]
     Route: 048
     Dates: start: 20030318, end: 20030508
  5. MYCOPHENOLATE MOFETIL [Suspect]
     Dates: start: 20030516, end: 20030702
  6. MYCOPHENOLATE MOFETIL [Suspect]
     Route: 048
     Dates: start: 20030703, end: 20030804
  7. MYCOPHENOLATE MOFETIL [Suspect]
     Route: 048
     Dates: start: 20030805
  8. PREDNISOLONE [Suspect]
     Indication: PROPHYLAXIS AGAINST TRANSPLANT REJECTION
     Dosage: 100 MG ONCE
     Route: 048
     Dates: start: 20030317, end: 20030317
  9. PREDNISOLONE [Suspect]
     Route: 048
     Dates: start: 20030318, end: 20030325
  10. PREDNISOLONE [Suspect]
     Route: 048
     Dates: start: 20030326, end: 20030514
  11. PREDNISOLONE [Suspect]
     Dosage: 100 MG DAILY
     Route: 048
     Dates: start: 20030517, end: 20030701
  12. PREDNISOLONE [Suspect]
     Dosage: 500 MG DAILY
     Route: 042
     Dates: start: 20030702, end: 20030703
  13. PREDNISOLONE [Suspect]
     Dosage: 70 MG
     Route: 048
     Dates: start: 20030704, end: 20030704
  14. PREDNISOLONE [Suspect]
     Dosage: 35 MG DAILY
     Dates: start: 20030707
  15. NYSTATIN [Concomitant]
     Dosage: NOT PROVIDED
     Route: 065
     Dates: start: 20030317, end: 20030508
  16. AMLODIPINE [Concomitant]
     Dosage: NOT PROVIDED
     Route: 065
     Dates: start: 20030603
  17. AMPHOTERICIN B [Concomitant]
     Dosage: NOT PROVIDED
     Route: 065
     Dates: start: 20030514
  18. CANDESARTAN [Concomitant]
     Dosage: NOT PROVIDED
     Route: 065
     Dates: start: 20030724, end: 20030802
  19. ATORVASTATIN CALCIUM [Concomitant]
     Dosage: NOT PROVIDED
     Route: 065
     Dates: start: 20030527
  20. CEFOTAXIME [Concomitant]
     Dosage: NOT PROVIDED
     Route: 065
     Dates: start: 20030319, end: 20030328
  21. CO-TRIMOXAZOLE [Concomitant]
     Dosage: NOT PROVIDED
     Route: 065
     Dates: start: 20030403, end: 20030508
  22. COLECALCIFEROL [Concomitant]
     Dosage: NOT PROVIDED
     Route: 065
     Dates: start: 20030523
  23. TRIAMTERENE AND HYDROCHLOROTHIAZIDE [Concomitant]
     Dosage: NOT PROVIDED
     Route: 065
     Dates: start: 20030817
  24. FUROSEMIDE [Concomitant]
     Dosage: NOT PROVIDED
     Route: 065
     Dates: start: 20030515, end: 20030722
  25. HYDROCHLOROTHIAZIDE [Concomitant]
     Dosage: NOT PROVIDED
     Route: 065
     Dates: start: 20030722, end: 20030816
  26. METOPROLOL SUCCINATE [Concomitant]
     Dosage: NOT PROVIDED
     Route: 065
     Dates: start: 20030523
  27. MOXONIDINE [Concomitant]
     Dosage: NOT PROVIDED
     Route: 065
     Dates: start: 20030625, end: 20030822
  28. PIPERACILLIN SODIUM/TAZOBACTAM SODIUM [Concomitant]
     Dosage: NOT PROVIDED
     Route: 065
     Dates: start: 20030329, end: 20030814
  29. REDUCTO [Concomitant]
     Dosage: NOT PROVIDED
     Route: 065
     Dates: start: 20030320, end: 20030716
  30. SULTAMICILLIN [Concomitant]
     Dosage: NOT PROVIDED
     Route: 065
     Dates: start: 20030701, end: 20030701
  31. SULTAMICILLIN [Concomitant]
     Dosage: NOT PROVIDED
     Dates: start: 20030715, end: 20030718
  32. AMPICILLIN AND SULBACTAM [Concomitant]
     Dosage: NOT PROVIDED
     Route: 065
     Dates: start: 20030814
  33. CIPROFLOXACIN [Concomitant]
     Dosage: NOT PROVIDED
     Route: 065
     Dates: start: 20030319, end: 20030924
  34. CEFUROXIME [Concomitant]
     Dosage: NOT PROVIDED
     Route: 065
     Dates: start: 20030514, end: 20030618
  35. TACROLIMUS [Concomitant]
     Indication: PROPHYLAXIS AGAINST TRANSPLANT REJECTION
     Dosage: 3 MG ONCE
     Route: 048
     Dates: start: 20030702, end: 20030702
  36. TACROLIMUS [Concomitant]
     Dosage: 6 MG DAILY ADJUSTED ACCORDING TO TROUGH LEVELS
     Route: 048
     Dates: start: 20030703
  37. DACLIZUMAB [Concomitant]
     Indication: PROPHYLAXIS AGAINST TRANSPLANT REJECTION
     Dosage: 140 MG/SINGLE DOSE
     Route: 042
     Dates: start: 20030317, end: 20030317
  38. DACLIZUMAB [Concomitant]
     Dosage: 72 MG/SINGLE DOSE
     Route: 042
     Dates: start: 20030415, end: 20030415
  39. DACLIZUMAB [Concomitant]
     Dosage: 70 MG/SINGLE DOSE
     Route: 042
     Dates: start: 20030429, end: 20030429
  40. DACLIZUMAB [Concomitant]
     Dosage: 70 MG/SINGLE DOSE
     Route: 042
     Dates: start: 20030513, end: 20030513

REACTIONS (4)
  - CYSTITIS [None]
  - NEPHROCALCINOSIS [None]
  - URETERAL NECROSIS [None]
  - VESICAL FISTULA [None]
